FAERS Safety Report 8374618-8 (Version None)
Quarter: 2012Q2

REPORT INFORMATION
  Report Type: 
  Country: None (occurrence: None)
  Receive Date: 20120521
  Receipt Date: 20110803
  Transmission Date: 20120825
  Serious: No
  Sender: FDA-Public Use
  Company Number: US-ASTRAZENECA-2011SE55751

PATIENT
  Sex: Male

DRUGS (1)
  1. PRILOSEC OTC [Suspect]
     Indication: GASTROOESOPHAGEAL REFLUX DISEASE
     Route: 048
     Dates: start: 20110601

REACTIONS (6)
  - DYSPEPSIA [None]
  - DYSPHAGIA [None]
  - INCORRECT DRUG ADMINISTRATION DURATION [None]
  - DIZZINESS [None]
  - ABDOMINAL PAIN [None]
  - OFF LABEL USE [None]
